FAERS Safety Report 8243538-1 (Version None)
Quarter: 2012Q1

REPORT INFORMATION
  Report Type: 
  Country: None (occurrence: None)
  Receive Date: 20120329
  Receipt Date: 20120326
  Transmission Date: 20120608
  Serious: Yes (Hospitalization)
  Sender: FDA-Public Use
  Company Number: PHEH2011US05487

PATIENT
  Sex: Female
  Weight: 71.4 kg

DRUGS (7)
  1. NUVIGIL [Concomitant]
     Dosage: 150 MG, DAILY
     Route: 048
  2. VITAMIN D [Concomitant]
     Dosage: 50 KIU, WEEKLY
     Route: 048
  3. NORTRIPTYLINE HCL [Concomitant]
     Dosage: 125 MG, UNK
     Route: 048
  4. KEPPRA [Concomitant]
     Dosage: 500 MG, BID
     Route: 048
  5. CONTRACEPTIVES [Concomitant]
     Dosage: UNK UKN, UNK
     Route: 062
  6. GILENYA [Suspect]
     Indication: MULTIPLE SCLEROSIS
     Dosage: 0.5 MG, DAILY
     Route: 048
     Dates: start: 20101231
  7. LEVETIRACETAM [Concomitant]

REACTIONS (11)
  - SUPRAVENTRICULAR TACHYCARDIA [None]
  - HEART RATE INCREASED [None]
  - PALPITATIONS [None]
  - DIARRHOEA [None]
  - NEUTROPHIL COUNT INCREASED [None]
  - CHEST DISCOMFORT [None]
  - SINUS TACHYCARDIA [None]
  - RED BLOOD CELL COUNT DECREASED [None]
  - LYMPHOCYTE COUNT DECREASED [None]
  - DYSPNOEA [None]
  - CHEST PAIN [None]
